FAERS Safety Report 6640252-0 (Version None)
Quarter: 2010Q1

REPORT INFORMATION
  Report Type: 
  Country: None (occurrence: None)
  Receive Date: 20100318
  Receipt Date: 20100317
  Transmission Date: 20100710
  Serious: Yes (Disabling, Congenital Anomaly)
  Sender: FDA-Public Use
  Company Number: GB-PERRIGO-10GB007914

PATIENT

DRUGS (1)
  1. CETIRIZINE HYDROCHLORIDE 16208/0066 10 MG [Suspect]
     Indication: DRUG USE FOR UNKNOWN INDICATION
     Dosage: UNK
     Route: 064

REACTIONS (2)
  - DEAFNESS [None]
  - DRUG EXPOSURE DURING PREGNANCY [None]
